FAERS Safety Report 8303703-1 (Version None)
Quarter: 2012Q2

REPORT INFORMATION
  Report Type: 
  Country: None (occurrence: None)
  Receive Date: 20120423
  Receipt Date: 20120413
  Transmission Date: 20120825
  Serious: No
  Sender: FDA-Public Use
  Company Number: US-PFIZER INC-2012072018

PATIENT
  Sex: Male

DRUGS (5)
  1. CAMPTOSAR [Suspect]
     Indication: COLON CANCER
     Dosage: 180 MG/M2, CYCLIC, EVERY WEEKS
     Route: 042
     Dates: start: 20111221, end: 20120120
  2. FLUOROURACIL [Concomitant]
     Dosage: 5825 OVER 48 HRS
     Route: 042
  3. DECADRON [Concomitant]
     Dosage: 10 MG, UNK
     Route: 042
  4. ZOFRAN [Concomitant]
     Dosage: 16 MG
     Route: 042
  5. FLUOROURACIL [Concomitant]
     Dosage: 975 MG,UNK
     Route: 042

REACTIONS (1)
  - DIARRHOEA [None]
